FAERS Safety Report 4391791-7 (Version None)
Quarter: 2004Q3

REPORT INFORMATION
  Report Type: 
  Country: None (occurrence: None)
  Receive Date: 20040701
  Receipt Date: 20040618
  Transmission Date: 20050211
  Serious: Yes (Hospitalization)
  Sender: FDA-Public Use
  Company Number: 04-NIP00083

PATIENT
  Age: 66 Year
  Sex: Male

DRUGS (8)
  1. NIPENT [Suspect]
     Indication: NON-HODGKIN'S LYMPHOMA
     Dosage: 10 MG (D1 - D8 Q 21DAYS), INTRAVENOUS
     Route: 042
     Dates: start: 20040504, end: 20040602
  2. RITUXAN [Suspect]
     Dosage: 948 MG (DAY 1 Q 21DAYS), INTRAVENOUS
     Route: 042
     Dates: start: 20040511, end: 20040525
  3. CYTOXAN [Suspect]
     Dosage: 1518 MG (DAY 1 Q 21 DAUS), INTRAVENOUS
     Route: 042
     Dates: start: 20040504, end: 20040525
  4. GLUCOVANCE [Concomitant]
  5. LIPITOR [Concomitant]
  6. EXELON (AMITRIPTYLINE HCL) [Concomitant]
  7. PLAVIX [Concomitant]
  8. ASPIRIN [Concomitant]

REACTIONS (3)
  - CONDITION AGGRAVATED [None]
  - DRUG INEFFECTIVE [None]
  - MIGRAINE [None]
